FAERS Safety Report 16377313 (Version 2)
Quarter: 2020Q1

REPORT INFORMATION
  Report Type: Report from Study
  Country: JP (occurrence: JP)
  Receive Date: 20190531
  Receipt Date: 20200129
  Transmission Date: 20200409
  Serious: Yes (Death, Hospitalization, Other)
  Sender: FDA-Public Use
  Company Number: JP-SA-2019SA147811

PATIENT
  Age: 68 Year
  Sex: Male
  Weight: 61.7 kg

DRUGS (18)
  1. CALCIUM FOLINATE [Suspect]
     Active Substance: LEUCOVORIN CALCIUM
     Dosage: 200 MG/M2, 1X
     Route: 065
     Dates: start: 20181204, end: 20181204
  2. FLUOROURACIL. [Suspect]
     Active Substance: FLUOROURACIL
     Dosage: BOLUS: 400 MG/M2, CONTINUOUS IV DRIP: 2400 MG/M2, 1X
     Route: 042
     Dates: start: 20181204, end: 20181204
  3. LOPENA [Concomitant]
     Indication: DIARRHOEA
     Dosage: UNK
     Route: 048
     Dates: start: 20190109, end: 20190402
  4. AFLIBERCEPT [Suspect]
     Active Substance: AFLIBERCEPT
     Indication: COLON CANCER
     Dosage: 4 MG/KG, QOW
     Route: 041
     Dates: start: 20190122, end: 20190319
  5. CALCIUM FOLINATE [Suspect]
     Active Substance: LEUCOVORIN CALCIUM
     Dosage: 200 MG/M2, 1X
     Route: 065
     Dates: start: 20190109, end: 20190109
  6. IRINOTECAN [Suspect]
     Active Substance: IRINOTECAN
     Dosage: 180 MG/M2, 1X
     Route: 065
     Dates: start: 20181204, end: 20181204
  7. HACHIAZULE [SODIUM BICARBONATE;SODIUM GUALENATE] [Concomitant]
     Indication: STOMATITIS
     Dosage: UNK
     Route: 049
     Dates: start: 20190403
  8. AFLIBERCEPT [Suspect]
     Active Substance: AFLIBERCEPT
     Dosage: 4 MG/KG, 1X
     Route: 041
     Dates: start: 20190109, end: 20190109
  9. CALCIUM FOLINATE [Suspect]
     Active Substance: LEUCOVORIN CALCIUM
     Indication: COLON CANCER
     Dosage: 200 MG/M2, QOW
     Route: 065
     Dates: start: 20190122, end: 20190319
  10. IRINOTECAN [Suspect]
     Active Substance: IRINOTECAN
     Dosage: 137 MG/M2, QOW
     Route: 065
     Dates: start: 20190122, end: 20190305
  11. FLUOROURACIL. [Suspect]
     Active Substance: FLUOROURACIL
     Dosage: BOLUS: 400 MG/M2, CONTINUOUS IV DRIP: 2400 MG/M2, 1X
     Route: 042
     Dates: start: 20190109, end: 20190109
  12. FLUOROURACIL. [Suspect]
     Active Substance: FLUOROURACIL
     Dosage: BOLUS: 400 MG/M2, CONTINUOUS IV DRIP: 2400 MG/M2, QOW
     Route: 042
     Dates: start: 20190122, end: 20190305
  13. FLUOROURACIL. [Suspect]
     Active Substance: FLUOROURACIL
     Indication: COLON CANCER
     Dosage: BOLUS: 320 MG/M2, CONTINUOUS IV DRIP: 2000 MG/M2, 1X
     Route: 042
     Dates: start: 20190319, end: 20190319
  14. AZUNOL [SODIUM GUALENATE] [Concomitant]
     Active Substance: SODIUM GUALENATE
     Indication: STOMATITIS
     Dosage: UNK
     Route: 065
     Dates: start: 20181218, end: 20190402
  15. AFLIBERCEPT [Suspect]
     Active Substance: AFLIBERCEPT
     Dosage: 4 MG/KG, 1X
     Route: 041
     Dates: start: 20181204, end: 20181204
  16. IRINOTECAN [Suspect]
     Active Substance: IRINOTECAN
     Dosage: 137 MG/M2, 1X
     Route: 065
     Dates: start: 20190109, end: 20190109
  17. DEXALTIN [Concomitant]
     Active Substance: DEXAMETHASONE
     Indication: STOMATITIS
     Dosage: UNK
     Route: 049
     Dates: start: 20181218
  18. IRINOTECAN [Suspect]
     Active Substance: IRINOTECAN
     Indication: COLON CANCER
     Dosage: 126 MG/M2, 1X
     Route: 065
     Dates: start: 20190319, end: 20190319

REACTIONS (3)
  - Anaemia [Recovering/Resolving]
  - Melaena [Recovered/Resolved]
  - Haematemesis [Fatal]

NARRATIVE: CASE EVENT DATE: 20190401
